FAERS Safety Report 8558802-6 (Version None)
Quarter: 2012Q3

REPORT INFORMATION
  Report Type: 
  Country: None (occurrence: None)
  Receive Date: 20120801
  Receipt Date: 20120716
  Transmission Date: 20120928
  Serious: Yes (Hospitalization)
  Sender: FDA-Public Use
  Company Number: US-MSD-1204USA03831

PATIENT

DRUGS (3)
  1. HYZAAR [Suspect]
     Indication: HYPERTENSION
     Dosage: 100MG-12.5
     Route: 048
     Dates: start: 20100101, end: 20120101
  2. PRADAXA [Concomitant]
  3. HYZAAR [Suspect]
     Dosage: 50MG-12.5
     Route: 048
     Dates: start: 20120101

REACTIONS (2)
  - DRUG INEFFECTIVE [None]
  - NO ADVERSE EVENT [None]
